FAERS Safety Report 12830372 (Version 2)
Quarter: 2017Q3

REPORT INFORMATION
  Report Type: Spontaneous
  Country: US (occurrence: US)
  Receive Date: 20161007
  Receipt Date: 20170928
  Transmission Date: 20171127
  Serious: No
  Sender: FDA-Public Use
  Company Number: US-SA-2016SA127312

PATIENT
  Age: 54 Year
  Sex: Female

DRUGS (13)
  1. AUBAGIO [Suspect]
     Active Substance: TERIFLUNOMIDE
     Indication: MULTIPLE SCLEROSIS
     Route: 048
  2. LISINOPRIL. [Concomitant]
     Active Substance: LISINOPRIL
  3. CLONIDINE. [Concomitant]
     Active Substance: CLONIDINE
  4. MORPHINE [Concomitant]
     Active Substance: MORPHINE
  5. LORATADINE. [Concomitant]
     Active Substance: LORATADINE
  6. POTASSIUM [Concomitant]
     Active Substance: POTASSIUM
  7. VICODIN [Concomitant]
     Active Substance: ACETAMINOPHEN\HYDROCODONE BITARTRATE
  8. LASIX [Concomitant]
     Active Substance: FUROSEMIDE
  9. VALIUM [Concomitant]
     Active Substance: DIAZEPAM
  10. OXYCODONE [Concomitant]
     Active Substance: OXYCODONE
  11. AUBAGIO [Suspect]
     Active Substance: TERIFLUNOMIDE
     Indication: MULTIPLE SCLEROSIS
     Route: 048
     Dates: start: 20160610
  12. AUBAGIO [Suspect]
     Active Substance: TERIFLUNOMIDE
     Indication: MULTIPLE SCLEROSIS
     Dosage: DOSE- CUTTING THE AUBAGIO 14 MG TABLETS IN HALF
     Route: 048
  13. PROTONIX [Concomitant]
     Active Substance: PANTOPRAZOLE SODIUM

REACTIONS (5)
  - Feeling abnormal [Unknown]
  - Nausea [Unknown]
  - Intentional product use issue [Unknown]
  - Cerebral disorder [Unknown]
  - Vertigo [Unknown]

NARRATIVE: CASE EVENT DATE: 20160928
